FAERS Safety Report 25812236 (Version 2)
Quarter: 2025Q4

REPORT INFORMATION
  Report Type: Spontaneous
  Country: US (occurrence: US)
  Receive Date: 20250917
  Receipt Date: 20251014
  Transmission Date: 20260117
  Serious: No
  Sender: ROCHE
  Company Number: US-ROCHE-10000386148

PATIENT
  Age: 14 Year
  Sex: Female
  Weight: 59.6 kg

DRUGS (1)
  1. ACTEMRA ACTPEN [Suspect]
     Active Substance: TOCILIZUMAB
     Indication: Juvenile idiopathic arthritis
     Route: 058
     Dates: start: 202404

REACTIONS (5)
  - Pain [Recovered/Resolved]
  - Aggression [Recovered/Resolved]
  - Urticaria [Recovered/Resolved]
  - Injection site pain [Unknown]
  - Erythema [Unknown]

NARRATIVE: CASE EVENT DATE: 20250909
